FAERS Safety Report 16803605 (Version 1)
Quarter: 2019Q3

REPORT INFORMATION
  Report Type: Spontaneous
  Country: US (occurrence: US)
  Receive Date: 20190913
  Receipt Date: 20190913
  Transmission Date: 20191005
  Serious: Yes (Hospitalization, Other)
  Sender: FDA-Public Use
  Company Number: US-AXELLIA-002687

PATIENT
  Age: 62 Year
  Sex: Male

DRUGS (3)
  1. ERTAPENEM/ERTAPENEM SODIUM [Suspect]
     Active Substance: ERTAPENEM
     Indication: PRODUCT USED FOR UNKNOWN INDICATION
  2. MEROPENEM. [Suspect]
     Active Substance: MEROPENEM
     Indication: PRODUCT USED FOR UNKNOWN INDICATION
  3. VANCOMYCIN [Suspect]
     Active Substance: VANCOMYCIN
     Indication: PRODUCT USED FOR UNKNOWN INDICATION

REACTIONS (1)
  - Erythema multiforme [Recovered/Resolved]
